FAERS Safety Report 4815590-4 (Version None)
Quarter: 2005Q4

REPORT INFORMATION
  Report Type: 
  Country: None (occurrence: None)
  Receive Date: 20051031
  Receipt Date: 20051019
  Transmission Date: 20060501
  Serious: Yes (Other)
  Sender: FDA-Public Use
  Company Number: JP-BRISTOL-MYERS SQUIBB COMPANY-13152228

PATIENT
  Age: 71 Year
  Sex: Male

DRUGS (2)
  1. VEPESID [Suspect]
     Indication: LYMPHOMA
     Route: 048
  2. PREDNISOLONE [Suspect]
     Indication: LYMPHOMA
     Route: 048

REACTIONS (3)
  - GASTRIC ADENOMA [None]
  - GASTRIC CANCER [None]
  - TREATMENT RELATED SECONDARY MALIGNANCY [None]
